FAERS Safety Report 21550692 (Version 1)
Quarter: 2022Q4

REPORT INFORMATION
  Report Type: Report from Study
  Country: TH (occurrence: None)
  Receive Date: 20221103
  Receipt Date: 20221103
  Transmission Date: 20230113
  Serious: Yes (Death)
  Sender: FDA-Public Use
  Company Number: 2022A363121

PATIENT
  Age: 24974 Day
  Sex: Female

DRUGS (1)
  1. TAGRISSO [Suspect]
     Active Substance: OSIMERTINIB
     Indication: Non-small cell lung cancer metastatic
     Dosage: 80 MG OD
     Route: 048
     Dates: start: 2019, end: 20221031

REACTIONS (1)
  - Death [Fatal]

NARRATIVE: CASE EVENT DATE: 20221031
